FAERS Safety Report 5573203-0 (Version None)
Quarter: 2007Q4

REPORT INFORMATION
  Report Type: 
  Country: None (occurrence: None)
  Receive Date: 20071224
  Receipt Date: 20071214
  Transmission Date: 20080405
  Serious: Yes (Other)
  Sender: FDA-Public Use
  Company Number: CA-SANOFI-SYNTHELABO-A01200712834

PATIENT
  Age: 49 Year
  Sex: Female

DRUGS (3)
  1. AVASTIN [Concomitant]
     Dosage: UNK
     Dates: start: 20071022, end: 20071022
  2. OXALIPLATIN [Suspect]
     Dosage: UNK
     Route: 042
  3. CHEMOTHERAPY NOS [Concomitant]
     Dosage: UNK

REACTIONS (4)
  - BRONCHOSPASM [None]
  - DYSPNOEA [None]
  - FLUSHING [None]
  - RESPIRATORY DISTRESS [None]
